FAERS Safety Report 16809679 (Version 1)
Quarter: 2019Q3

REPORT INFORMATION
  Report Type: Spontaneous
  Country: US (occurrence: US)
  Receive Date: 20190724
  Receipt Date: 20190724
  Transmission Date: 20191005
  Serious: Yes (Disabling, Other)
  Sender: FDA-Public Use
  Company Number: None

PATIENT
  Age: 40 Year
  Sex: Female
  Weight: 81.65 kg

DRUGS (6)
  1. ABILIFY [Suspect]
     Active Substance: ARIPIPRAZOLE
     Dosage: ?          QUANTITY:300 MG MILLIGRAM(S);?
     Route: 048
     Dates: start: 20190704, end: 20190709
  2. PURGIL [Concomitant]
  3. DEPRO-PROVERA [Concomitant]
  4. TRAMADONE [Concomitant]
  5. GINGER TEA [Concomitant]
  6. VITAMIN D [Concomitant]
     Active Substance: VITAMIN D NOS

REACTIONS (1)
  - Narcolepsy [None]

NARRATIVE: CASE EVENT DATE: 20190724
